FAERS Safety Report 4989856-1 (Version None)
Quarter: 2006Q2

REPORT INFORMATION
  Report Type: 
  Country: None (occurrence: None)
  Receive Date: 20060503
  Receipt Date: 20060424
  Transmission Date: 20061013
  Serious: Yes (Hospitalization)
  Sender: FDA-Public Use
  Company Number: FR-AVENTIS-200611535FR

PATIENT
  Age: 80 Year
  Sex: Male

DRUGS (3)
  1. LASILIX [Suspect]
     Route: 048
     Dates: end: 20050915
  2. TRIATEC [Suspect]
     Route: 048
     Dates: end: 20050915
  3. PREVISCAN [Concomitant]
     Route: 048
     Dates: end: 20050915

REACTIONS (4)
  - DEHYDRATION [None]
  - DIARRHOEA [None]
  - INTERNATIONAL NORMALISED RATIO INCREASED [None]
  - RENAL FAILURE [None]
